FAERS Safety Report 7757289-0 (Version None)
Quarter: 2011Q3

REPORT INFORMATION
  Report Type: 
  Country: None (occurrence: None)
  Receive Date: 20110916
  Receipt Date: 20110914
  Transmission Date: 20111222
  Serious: No
  Sender: FDA-Public Use
  Company Number: US-BAYER-2011-086190

PATIENT
  Sex: Female

DRUGS (1)
  1. MIRENA [Suspect]
     Dosage: 20 ?G/D, CONT
     Route: 015
     Dates: end: 20110301

REACTIONS (4)
  - AMENORRHOEA [None]
  - HYPOMENORRHOEA [None]
  - INFERTILITY FEMALE [None]
  - MENSTRUATION IRREGULAR [None]
